FAERS Safety Report 15598830 (Version 1)
Quarter: 2018Q4

REPORT INFORMATION
  Report Type: Spontaneous
  Country: US (occurrence: US)
  Receive Date: 20181108
  Receipt Date: 20181108
  Transmission Date: 20190205
  Serious: Yes (Other)
  Sender: FDA-Public Use
  Company Number: US-BAYER-2018-204461

PATIENT
  Age: 61 Year
  Sex: Female

DRUGS (1)
  1. MIRENA [Suspect]
     Active Substance: LEVONORGESTREL
     Indication: UTERINE CANCER
     Dosage: 20 MCG/24HR, CONT
     Route: 015
     Dates: start: 20180724

REACTIONS (6)
  - Contraindicated device used [None]
  - Pain [Not Recovered/Not Resolved]
  - Off label use [None]
  - Genital haemorrhage [None]
  - Product use in unapproved indication [None]
  - Asthenia [Not Recovered/Not Resolved]

NARRATIVE: CASE EVENT DATE: 2018
